FAERS Safety Report 18297721 (Version 1)
Quarter: 2020Q3

REPORT INFORMATION
  Report Type: Spontaneous
  Country: FR (occurrence: FR)
  Receive Date: 20200922
  Receipt Date: 20200922
  Transmission Date: 20201103
  Serious: Yes (Hospitalization)
  Sender: FDA-Public Use
  Company Number: FR-MYLANLABS-2020M1079620

PATIENT
  Age: 77 Year
  Sex: Female
  Weight: 61 kg

DRUGS (1)
  1. PREGABALIN. [Suspect]
     Active Substance: PREGABALIN
     Indication: NEURALGIA
     Dosage: MATIN ET SOIR
     Route: 048
     Dates: start: 20200725, end: 20200728

REACTIONS (6)
  - Acute kidney injury [Recovering/Resolving]
  - Tremor [Recovering/Resolving]
  - Product prescribing error [Recovered/Resolved]
  - Somnolence [Recovering/Resolving]
  - Overdose [Recovering/Resolving]
  - Asthenia [Recovering/Resolving]

NARRATIVE: CASE EVENT DATE: 202007
